FAERS Safety Report 6366899-7 (Version None)
Quarter: 2009Q3

REPORT INFORMATION
  Report Type: 
  Country: None (occurrence: None)
  Receive Date: 20090821
  Receipt Date: 20090720
  Transmission Date: 20100115
  Serious: No
  Sender: FDA-Public Use
  Company Number: 8049208

PATIENT
  Age: 33 Year
  Sex: Female
  Weight: 68 kg

DRUGS (3)
  1. CIMZIA [Suspect]
     Indication: COLITIS ULCERATIVE
     Dosage: 400 MG SC
     Route: 058
     Dates: start: 20090626
  2. ASACOL [Concomitant]
  3. PREDNISONE [Concomitant]

REACTIONS (2)
  - OFF LABEL USE [None]
  - OLIGOMENORRHOEA [None]
